FAERS Safety Report 4515594-5 (Version None)
Quarter: 2004Q3

REPORT INFORMATION
  Report Type: 
  Country: None (occurrence: None)
  Receive Date: 20040930
  Receipt Date: 20040127
  Transmission Date: 20050211
  Serious: Yes (Other)
  Sender: FDA-Public Use
  Company Number: US-JNJFOC-20031006008

PATIENT
  Age: 69 Year
  Sex: Female
  Weight: 63.5036 kg

DRUGS (9)
  1. DITROPAN XL [Suspect]
     Indication: HYPERTONIC BLADDER
     Dosage: 5 MG, 1 IN 1 DAY, ORAL
     Route: 048
     Dates: start: 20011001
  2. MYSOLINE [Concomitant]
  3. FOSAMAX [Concomitant]
  4. TOPAMAX [Concomitant]
  5. DILANTIN [Concomitant]
  6. NEXIUM [Concomitant]
  7. CALCIUM (CALCIUM) [Concomitant]
  8. CENTRUM SILVER (CENTRUM SILVER) [Concomitant]
  9. LEVOTHYROID (LEVOTHYROXINE) [Concomitant]

REACTIONS (2)
  - CONVULSION [None]
  - FOOT FRACTURE [None]
